FAERS Safety Report 19193796 (Version 2)
Quarter: 2021Q3

REPORT INFORMATION
  Report Type: Spontaneous
  Country: US (occurrence: US)
  Receive Date: 20210429
  Receipt Date: 20210902
  Transmission Date: 20211014
  Serious: Yes (Other)
  Sender: FDA-Public Use
  Company Number: US-BAYER-2021-129281

PATIENT
  Age: 21 Year
  Sex: Female
  Weight: 59.41 kg

DRUGS (2)
  1. VICODIN [Concomitant]
     Active Substance: ACETAMINOPHEN\HYDROCODONE BITARTRATE
  2. MIRENA [Suspect]
     Active Substance: LEVONORGESTREL
     Indication: CONTRACEPTION
     Dosage: 20 ?G PER DAY,CONTINUOUSLY
     Route: 015
     Dates: start: 20200622, end: 20201105

REACTIONS (4)
  - Abdominal pain [None]
  - Abnormal uterine bleeding [None]
  - Device dislocation [Recovered/Resolved]
  - Dyspareunia [None]

NARRATIVE: CASE EVENT DATE: 20201105
